FAERS Safety Report 7161427-0 (Version None)
Quarter: 2010Q4

REPORT INFORMATION
  Report Type: 
  Country: None (occurrence: None)
  Receive Date: 20101215
  Receipt Date: 20101201
  Transmission Date: 20110411
  Serious: No
  Sender: FDA-Public Use
  Company Number: PHHY2010JP78217

PATIENT
  Age: 50 Year
  Sex: Female

DRUGS (4)
  1. DIOVAN [Suspect]
     Indication: HYPERTENSION
     Dosage: 80 MG TWICE DAILY
     Route: 048
     Dates: end: 20100901
  2. ACTOS [Suspect]
     Dosage: 30 MG DAILY
     Route: 048
  3. ACTOS [Suspect]
     Dosage: 15 MG
     Route: 048
     Dates: end: 20100901
  4. ACTOS [Suspect]
     Dosage: UNK
     Route: 048

REACTIONS (1)
  - OEDEMA [None]
